FAERS Safety Report 11710449 (Version 2)
Quarter: 2015Q4

REPORT INFORMATION
  Report Type: Spontaneous
  Country: US (occurrence: US)
  Receive Date: 20151104
  Receipt Date: 20151110
  Transmission Date: 20160304
  Serious: No
  Sender: FDA-Public Use
  Company Number: US-ELI_LILLY_AND_COMPANY-US201109002530

PATIENT
  Age: 58 Year
  Sex: Female

DRUGS (2)
  1. FORTEO [Suspect]
     Active Substance: TERIPARATIDE
     Indication: OSTEOPOROSIS
     Dosage: 20 UG, QD
     Route: 065
     Dates: start: 20110901
  2. FORTEO [Suspect]
     Active Substance: TERIPARATIDE
     Dosage: 20 UG, QD

REACTIONS (7)
  - Device failure [Unknown]
  - Fatigue [Recovering/Resolving]
  - Faeces discoloured [Not Recovered/Not Resolved]
  - Gingival recession [Unknown]
  - Anxiety [Not Recovered/Not Resolved]
  - Injection site reaction [Unknown]
  - Dental cleaning [Unknown]

NARRATIVE: CASE EVENT DATE: 201110
